FAERS Safety Report 13681202 (Version 1)
Quarter: 2017Q2

REPORT INFORMATION
  Report Type: Spontaneous
  Country: GB (occurrence: GB)
  Receive Date: 20170623
  Receipt Date: 20170623
  Transmission Date: 20170830
  Serious: Yes (Death)
  Sender: FDA-Public Use
  Company Number: PHFR2017GB004553

PATIENT
  Age: 60 Year
  Sex: Male
  Weight: 67 kg

DRUGS (7)
  1. PROCYCLIDINE ^GENERICS UK^ [Suspect]
     Active Substance: PROCYCLIDINE
     Indication: PRODUCT USED FOR UNKNOWN INDICATION
     Route: 065
  2. MOVICOL [Concomitant]
     Active Substance: POLYETHYLENE GLYCOL 3350\POTASSIUM CHLORIDE\SODIUM BICARBONATE\SODIUM CHLORIDE
     Indication: PRODUCT USED FOR UNKNOWN INDICATION
     Route: 065
  3. PARACETAMOL [Concomitant]
     Active Substance: ACETAMINOPHEN
     Indication: PRODUCT USED FOR UNKNOWN INDICATION
     Route: 065
  4. MIRTAZAPINE. [Suspect]
     Active Substance: MIRTAZAPINE
     Indication: SCHIZOAFFECTIVE DISORDER DEPRESSIVE TYPE
     Dosage: 30 MG, UNK
     Route: 048
     Dates: start: 2010, end: 20160920
  5. SENNA [Concomitant]
     Active Substance: SENNA LEAF\SENNOSIDES\SENNOSIDES A AND B
     Indication: PRODUCT USED FOR UNKNOWN INDICATION
     Route: 065
  6. SULPIRIDE [Suspect]
     Active Substance: SULPIRIDE
     Indication: SCHIZOAFFECTIVE DISORDER
     Dosage: 2000 MG, QD
     Route: 048
     Dates: start: 20080310, end: 20160920
  7. AMLODIPINE [Suspect]
     Active Substance: AMLODIPINE BESYLATE
     Indication: HYPERTENSION
     Dosage: 10 MG, UNK
     Route: 048
     Dates: end: 20160916

REACTIONS (7)
  - Colitis [Fatal]
  - Hepatic steatosis [Fatal]
  - Ketoacidosis [Fatal]
  - Pulmonary oedema [Fatal]
  - Circulatory collapse [Fatal]
  - Constipation [Fatal]
  - Brain oedema [Fatal]
